FAERS Safety Report 23859018 (Version 2)
Quarter: 2024Q2

REPORT INFORMATION
  Report Type: Spontaneous
  Country: HK (occurrence: HK)
  Receive Date: 20240515
  Receipt Date: 20240520
  Transmission Date: 20240717
  Serious: No
  Sender: FDA-Public Use
  Company Number: HK-BAYER-2024A070213

PATIENT
  Age: 42 Year
  Sex: Male
  Weight: 60.317 kg

DRUGS (2)
  1. PRIMOVIST [Suspect]
     Active Substance: GADOXETATE DISODIUM
     Indication: Magnetic resonance imaging hepatobiliary
     Dosage: 9 ML, ONCE
     Dates: start: 20240511, end: 20240511
  2. PRIMOVIST [Suspect]
     Active Substance: GADOXETATE DISODIUM
     Indication: Focal nodular hyperplasia

REACTIONS (7)
  - Nausea [Recovering/Resolving]
  - Rash [Recovered/Resolved]
  - Swelling of eyelid [Recovering/Resolving]
  - Ocular hyperaemia [Recovering/Resolving]
  - Dizziness [Recovering/Resolving]
  - Vomiting [Recovering/Resolving]
  - Blood pressure decreased [None]

NARRATIVE: CASE EVENT DATE: 20240511
